FAERS Safety Report 8614007-1 (Version None)
Quarter: 2012Q3

REPORT INFORMATION
  Report Type: 
  Country: None (occurrence: None)
  Receive Date: 20120823
  Receipt Date: 20120820
  Transmission Date: 20120928
  Serious: Yes (Hospitalization, Other)
  Sender: FDA-Public Use
  Company Number: US-PFIZER INC-2012204342

PATIENT
  Age: 51 Year
  Sex: Female
  Weight: 63.492 kg

DRUGS (3)
  1. CHANTIX [Suspect]
     Indication: SMOKING CESSATION THERAPY
     Dosage: 0.5 MG, DAILY
     Dates: start: 20120101, end: 20120101
  2. CHANTIX [Suspect]
     Dosage: UNK
     Dates: start: 20120101, end: 20120701
  3. NEURONTIN [Concomitant]
     Indication: SURGERY
     Dosage: 300 MG, 3X/DAY

REACTIONS (5)
  - DEPRESSION [None]
  - NIGHTMARE [None]
  - CEREBROVASCULAR ACCIDENT [None]
  - SUICIDE ATTEMPT [None]
  - OVERDOSE [None]
